FAERS Safety Report 14107907 (Version 1)
Quarter: 2017Q4

REPORT INFORMATION
  Report Type: Report from Study
  Country: CA (occurrence: CA)
  Receive Date: 20171019
  Receipt Date: 20171019
  Transmission Date: 20180321
  Serious: Yes (Hospitalization, Other)
  Sender: FDA-Public Use
  Company Number: CA-GLAXOSMITHKLINE-CA2017GSK158880

PATIENT
  Sex: Male

DRUGS (2)
  1. SALBUTAMOL SULPHATE [Suspect]
     Active Substance: ALBUTEROL SULFATE
     Indication: PRODUCT USED FOR UNKNOWN INDICATION
     Dosage: UNK
     Dates: start: 201707
  2. MARIJUANA [Suspect]
     Active Substance: CANNABIS SATIVA SUBSP. INDICA TOP
     Indication: PRODUCT USED FOR UNKNOWN INDICATION

REACTIONS (8)
  - Chest pain [Unknown]
  - Dyspnoea [Not Recovered/Not Resolved]
  - Panic attack [Unknown]
  - Cerebrovascular accident [Unknown]
  - Dizziness [Unknown]
  - Myocardial infarction [Unknown]
  - Anxiety [Unknown]
  - Asthma [Unknown]
